FAERS Safety Report 8256183-9 (Version None)
Quarter: 2012Q2

REPORT INFORMATION
  Report Type: 
  Country: None (occurrence: None)
  Receive Date: 20120403
  Receipt Date: 20120330
  Transmission Date: 20120825
  Serious: Yes (Death, Other)
  Sender: FDA-Public Use
  Company Number: CO-PFIZER INC-2012083205

PATIENT
  Sex: Male

DRUGS (5)
  1. METOPROLOL TARTRATE [Concomitant]
     Dosage: 100 MG, 3X/DAY
  2. LOSARTAN [Concomitant]
     Dosage: 50 MG, 2X/DAY
  3. LIPITOR [Suspect]
     Dosage: 10 MG, 1X/DAY
     Dates: start: 20080103
  4. ASPIRIN [Concomitant]
     Dosage: 100 MG, 1X/DAY
  5. AMLODIPINE BESILATE [Concomitant]
     Dosage: 5 MG, 2X/DAY

REACTIONS (1)
  - DEATH [None]
